FAERS Safety Report 4299897-8 (Version None)
Quarter: 2004Q1

REPORT INFORMATION
  Report Type: 
  Country: None (occurrence: None)
  Receive Date: 20040219
  Receipt Date: 20040219
  Transmission Date: 20041129
  Serious: Yes (Hospitalization)
  Sender: FDA-Public Use
  Company Number: None

PATIENT
  Age: 73 Year
  Sex: Male
  Weight: 90.2658 kg

DRUGS (5)
  1. BACTRIM DS [Suspect]
     Indication: INFECTION
     Dosage: 1 PO BID
     Route: 048
  2. FELODIPINE [Concomitant]
  3. GABAPENTIN [Concomitant]
  4. RANITIDINE [Concomitant]
  5. TERAZOSIN HCL [Concomitant]

REACTIONS (2)
  - ABDOMINAL PAIN [None]
  - URINE OUTPUT DECREASED [None]
